FAERS Safety Report 12328542 (Version 1)
Quarter: 2016Q2

REPORT INFORMATION
  Report Type: Spontaneous
  Country: US (occurrence: US)
  Receive Date: 20160503
  Receipt Date: 20160503
  Transmission Date: 20160815
  Serious: No
  Sender: FDA-Public Use
  Company Number: US-BEH-2015049058

PATIENT
  Sex: Female
  Weight: 52 kg

DRUGS (33)
  1. ALBUTEROL. [Concomitant]
     Active Substance: ALBUTEROL
  2. MYCOPHENOLATE [Concomitant]
     Active Substance: MYCOPHENOLIC ACID
  3. MEPRON [Concomitant]
     Active Substance: ATOVAQUONE
  4. NEXIUM [Concomitant]
     Active Substance: ESOMEPRAZOLE MAGNESIUM
  5. MUCINEX D ER [Concomitant]
  6. FERROUS SULFATE. [Concomitant]
     Active Substance: FERROUS SULFATE
  7. PROVENTIL HFA [Concomitant]
     Active Substance: ALBUTEROL SULFATE
  8. FIORICET [Concomitant]
     Active Substance: ACETAMINOPHEN\BUTALBITAL\CAFFEINE
  9. SINGULAIR [Concomitant]
     Active Substance: MONTELUKAST SODIUM
  10. HIZENTRA [Suspect]
     Active Substance: HUMAN IMMUNOGLOBULIN G
     Route: 058
  11. PENTAMIDINE [Concomitant]
     Active Substance: PENTAMIDINE
  12. FENOFIBRATE. [Concomitant]
     Active Substance: FENOFIBRATE
  13. TACROLIMUS. [Concomitant]
     Active Substance: TACROLIMUS
  14. HIZENTRA [Suspect]
     Active Substance: HUMAN IMMUNOGLOBULIN G
     Indication: IMMUNODEFICIENCY COMMON VARIABLE
     Route: 058
  15. TYLENOL WITH CODEINE [Concomitant]
     Active Substance: ACETAMINOPHEN\CODEINE PHOSPHATE
  16. ZYRTEC [Concomitant]
     Active Substance: CETIRIZINE HYDROCHLORIDE
  17. NEURONTIN [Concomitant]
     Active Substance: GABAPENTIN
  18. SYNTHROID [Concomitant]
     Active Substance: LEVOTHYROXINE SODIUM
  19. LEVEMIR [Concomitant]
     Active Substance: INSULIN DETEMIR
  20. ASTELIN [Concomitant]
     Active Substance: AZELASTINE HYDROCHLORIDE
  21. TRAMADOL. [Concomitant]
     Active Substance: TRAMADOL
  22. SUMATRIPTAN. [Concomitant]
     Active Substance: SUMATRIPTAN
  23. METOPROLOL. [Concomitant]
     Active Substance: METOPROLOL
  24. AZITHROMYCIN ANHYDROUS. [Concomitant]
     Active Substance: AZITHROMYCIN ANHYDROUS
  25. CALCIUM + D [Concomitant]
     Active Substance: CALCIUM\VITAMIN D
  26. REQUIP [Concomitant]
     Active Substance: ROPINIROLE HYDROCHLORIDE
  27. ZOFRAN [Concomitant]
     Active Substance: ONDANSETRON HYDROCHLORIDE
  28. HYDROCORTISONE. [Concomitant]
     Active Substance: HYDROCORTISONE
  29. LASIX [Concomitant]
     Active Substance: FUROSEMIDE
  30. CALCIUM CARBONATE. [Concomitant]
     Active Substance: CALCIUM CARBONATE
  31. NOVOLOG [Concomitant]
     Active Substance: INSULIN ASPART
  32. FLONASE [Concomitant]
     Active Substance: FLUTICASONE PROPIONATE
  33. ACETAMINOPHEN. [Concomitant]
     Active Substance: ACETAMINOPHEN

REACTIONS (2)
  - Nodule [Unknown]
  - Contusion [Unknown]
